FAERS Safety Report 18458593 (Version 1)
Quarter: 2020Q4

REPORT INFORMATION
  Report Type: Spontaneous
  Country: US (occurrence: US)
  Receive Date: 20201103
  Receipt Date: 20201103
  Transmission Date: 20210114
  Serious: No
  Sender: FDA-Public Use
  Company Number: US-TEVA-2020-US-1843345

PATIENT
  Age: 4 Year
  Sex: Male

DRUGS (2)
  1. CICLOSPORIN [Suspect]
     Active Substance: CYCLOSPORINE
     Indication: PLATELET COUNT DECREASED
     Dosage: 650 MILLIGRAM DAILY;
     Route: 065
     Dates: start: 20200823
  2. CICLOSPORIN [Suspect]
     Active Substance: CYCLOSPORINE

REACTIONS (2)
  - Red blood cell count decreased [Not Recovered/Not Resolved]
  - Anaemia [Not Recovered/Not Resolved]

NARRATIVE: CASE EVENT DATE: 2020
